FAERS Safety Report 7013218-9 (Version None)
Quarter: 2010Q3

REPORT INFORMATION
  Report Type: 
  Country: None (occurrence: None)
  Receive Date: 20100924
  Receipt Date: 20100915
  Transmission Date: 20110219
  Serious: Yes (Other)
  Sender: FDA-Public Use
  Company Number: JP-ABBOTT-10P-087-0671217-00

PATIENT
  Age: 9 Year
  Sex: Female

DRUGS (2)
  1. CLARITHROMYCIN [Suspect]
     Indication: NASOPHARYNGITIS
     Route: 048
     Dates: start: 20100914, end: 20100914
  2. LOXONIN [Concomitant]
     Indication: NASOPHARYNGITIS
     Dosage: 120 MG DAILY
     Route: 048
     Dates: start: 20100914, end: 20100914

REACTIONS (3)
  - DEPRESSED LEVEL OF CONSCIOUSNESS [None]
  - HALLUCINATION [None]
  - TINNITUS [None]
